FAERS Safety Report 20249094 (Version 5)
Quarter: 2022Q2

REPORT INFORMATION
  Report Type: Spontaneous
  Country: PL (occurrence: PL)
  Receive Date: 20211229
  Receipt Date: 20220525
  Transmission Date: 20220721
  Serious: Yes (Other)
  Sender: FDA-Public Use
  Company Number: PL-002147023-NVSC2021PL271842

PATIENT
  Age: 88 Year
  Sex: Male

DRUGS (77)
  1. ROSUVASTATIN [Suspect]
     Active Substance: ROSUVASTATIN
     Indication: Product used for unknown indication
     Dosage: 10 MILLIGRAM (START DATE: OCT-2019)
     Route: 065
  2. ROSUVASTATIN [Suspect]
     Active Substance: ROSUVASTATIN
     Dosage: 10 MILLIGRAM, QD (10 MG, QD) START DATE: SEP-2021
     Route: 065
  3. ROSUVASTATIN [Suspect]
     Active Substance: ROSUVASTATIN
     Dosage: 20 MILLIGRAM, QD (20 MG, QD) START DATE: 12-NOV-2021
     Route: 065
  4. ATORVASTATIN [Suspect]
     Active Substance: ATORVASTATIN
     Indication: Product used for unknown indication
     Dosage: 40 MILLIGRAM, QD (40 MG, QD)
     Route: 065
     Dates: start: 201810
  5. ATORVASTATIN [Suspect]
     Active Substance: ATORVASTATIN
     Dosage: 40 MILLIGRAM, QD (40 MG, QD)
     Route: 065
     Dates: start: 201810
  6. ATORVASTATIN [Suspect]
     Active Substance: ATORVASTATIN
     Dosage: 40 MILLIGRAM, QD (40 MG, QD)
     Route: 065
     Dates: start: 201910
  7. ATORVASTATIN [Suspect]
     Active Substance: ATORVASTATIN
     Dosage: 40 MILLIGRAM, QD, 40 MG, QD
     Route: 065
     Dates: start: 20211112
  8. ATORVASTATIN [Suspect]
     Active Substance: ATORVASTATIN
     Dosage: UNK
  9. ATORVASTATIN [Suspect]
     Active Substance: ATORVASTATIN
     Dosage: 40 MILLIGRAM, QD (40 MILLIGRAM DAILY)
     Route: 065
  10. METOPROLOL [Suspect]
     Active Substance: METOPROLOL
     Indication: Product used for unknown indication
     Dosage: 75 MILLIGRAM, QD (25 MG, TID, IN THE MORNING, AT NOON AND IN THE EVENING)
     Route: 065
     Dates: start: 201810
  11. METOPROLOL [Suspect]
     Active Substance: METOPROLOL
     Dosage: 50 ? 25 ? 25 MG
     Route: 065
     Dates: start: 201810
  12. METOPROLOL [Suspect]
     Active Substance: METOPROLOL
     Dosage: 75 MILLIGRAM, QD (25 MG, TID, IN THE MORNING, AT NOON AND IN THE EVENING)
     Route: 065
     Dates: start: 201910
  13. METOPROLOL [Suspect]
     Active Substance: METOPROLOL
     Dosage: 200 MILLIGRAM, QD (100 MG, BID)
     Route: 065
     Dates: start: 201911
  14. METOPROLOL [Suspect]
     Active Substance: METOPROLOL
     Dosage: 5 MILLIGRAM, QD (5 MG, QD)
     Route: 065
     Dates: start: 20211112
  15. METOPROLOL [Suspect]
     Active Substance: METOPROLOL
     Dosage: 400 MILLIGRAM, QD, (100 MG, BID)
     Route: 065
     Dates: start: 201911
  16. METOPROLOL [Suspect]
     Active Substance: METOPROLOL
     Dosage: 225 MILLIGRAM, QD, (25 MG, TID, IN THE MORNING, AT NOON AND IN THE EVENING)
     Route: 065
     Dates: start: 201810
  17. METOPROLOL [Suspect]
     Active Substance: METOPROLOL
     Dosage: 225 MILLIGRAM, QD, (25 MG, TID, IN THE MORNING, AT NOON AND IN THE EVENING)
     Route: 065
     Dates: start: 201910
  18. METOPROLOL [Suspect]
     Active Substance: METOPROLOL
     Dosage: 200 MILLIGRAM DAILY
     Route: 065
  19. METOPROLOL [Suspect]
     Active Substance: METOPROLOL
     Dosage: 225 MILLIGRAM
     Route: 065
  20. METOPROLOL [Suspect]
     Active Substance: METOPROLOL
     Dosage: 400 MILLIGRAM
     Route: 065
  21. METOPROLOL [Suspect]
     Active Substance: METOPROLOL
     Dosage: 75 MILLIGRAM, QD (75 MILLIGRAM DAILY; 25 MG,1 IN 8 HR)
     Route: 065
  22. TORSEMIDE [Suspect]
     Active Substance: TORSEMIDE
     Indication: Product used for unknown indication
     Dosage: 10 MILLIGRAM, QD (10 MG, QD, IN THE MORNING)
     Route: 065
     Dates: start: 201810
  23. TORSEMIDE [Suspect]
     Active Substance: TORSEMIDE
     Dosage: 15 MILLIGRAM, QD (15 MG, QD)
     Route: 065
     Dates: start: 201810
  24. TORSEMIDE [Suspect]
     Active Substance: TORSEMIDE
     Dosage: 10 MILLIGRAM, QD (10 MG, QD)
     Route: 065
     Dates: start: 201910
  25. TORSEMIDE [Suspect]
     Active Substance: TORSEMIDE
     Dosage: 15 MILLIGRAM, QD (15 MG, QD)
     Route: 065
     Dates: start: 201910
  26. TORSEMIDE [Suspect]
     Active Substance: TORSEMIDE
     Dosage: 20 MILLIGRAM, QD (10 MG, BID)
     Route: 065
     Dates: start: 202109
  27. TORSEMIDE [Suspect]
     Active Substance: TORSEMIDE
     Dosage: 20 MILLIGRAM, QD (10 MG, BID)
     Route: 065
     Dates: start: 20211112
  28. TORSEMIDE [Suspect]
     Active Substance: TORSEMIDE
     Dosage: 10 MILLIGRAM, QD (10 MILLIGRAM DAILY)
     Route: 065
  29. TORSEMIDE [Suspect]
     Active Substance: TORSEMIDE
     Dosage: 20 MILLIGRAM, QD (20 MILLIGRAM DAILY)
     Route: 065
  30. TORSEMIDE [Suspect]
     Active Substance: TORSEMIDE
     Dosage: 1 UNK, QD
     Route: 065
  31. TORSEMIDE [Suspect]
     Active Substance: TORSEMIDE
     Dosage: 40 MILLIGRAM, BID (80 MILLIGRAM DAILY)
     Route: 065
     Dates: start: 201910
  32. TORSEMIDE [Suspect]
     Active Substance: TORSEMIDE
     Dosage: 40 MILLIGRAM, QD (40 MILLIGRAM DAILY)
     Route: 065
     Dates: start: 20211112
  33. ASPIRIN [Suspect]
     Active Substance: ASPIRIN
     Indication: Product used for unknown indication
     Dosage: 5 MILLIGRAM, QD (2.5 MG, BID)
     Route: 065
     Dates: start: 201810
  34. ASPIRIN [Suspect]
     Active Substance: ASPIRIN
     Dosage: 10 MILLIGRAM, QD (10 MILLIGRAM DAILY)
     Route: 065
  35. UNSPECIFIED INGREDIENT [Suspect]
     Active Substance: UNSPECIFIED INGREDIENT
     Indication: Product used for unknown indication
     Dosage: UNK
     Route: 065
  36. OMEPRAZOLE [Suspect]
     Active Substance: OMEPRAZOLE
     Indication: Product used for unknown indication
     Dosage: 20 MILLIGRAM, QD (20 MG, QD)
     Route: 065
     Dates: start: 201810
  37. OMEPRAZOLE [Suspect]
     Active Substance: OMEPRAZOLE
     Dosage: 20 MILLIGRAM, QD (20 MG, QD)
     Route: 065
     Dates: start: 201910
  38. OMEPRAZOLE [Suspect]
     Active Substance: OMEPRAZOLE
     Dosage: 10 MILLIGRAM, QD (10 MG, QD)
     Route: 065
     Dates: start: 202109
  39. OMEPRAZOLE [Suspect]
     Active Substance: OMEPRAZOLE
     Dosage: 20 MILLIGRAM, QD (20 MG, QD)
     Route: 065
     Dates: start: 20211112
  40. OMEPRAZOLE [Suspect]
     Active Substance: OMEPRAZOLE
     Dosage: 20 MILLIGRAM, QD (20 MG, QD)
     Route: 065
     Dates: start: 202109
  41. OMEPRAZOLE [Suspect]
     Active Substance: OMEPRAZOLE
     Dosage: UNK
     Route: 065
     Dates: start: 20211112
  42. RAMIPRIL [Suspect]
     Active Substance: RAMIPRIL
     Indication: Product used for unknown indication
     Dosage: 5 MILLIGRAM, QD (2.5 MG, BID, IN THE MORNING AND EVENING)
     Route: 065
  43. RAMIPRIL [Suspect]
     Active Substance: RAMIPRIL
     Dosage: 5 MILLIGRAM, QD (2.5 MG, QD)
     Route: 065
  44. RAMIPRIL [Suspect]
     Active Substance: RAMIPRIL
     Dosage: 2.5 MILLIGRAM, QD (2.5 MILLIGRAM DAILY)
  45. RAMIPRIL [Suspect]
     Active Substance: RAMIPRIL
     Dosage: UNK
     Route: 065
  46. SACUBITRIL\VALSARTAN [Suspect]
     Active Substance: SACUBITRIL\VALSARTAN
     Indication: Product used for unknown indication
     Dosage: 1 DOSAGE FORMS DAILY; 24/26 MG
     Route: 065
     Dates: start: 201810
  47. SACUBITRIL\VALSARTAN [Suspect]
     Active Substance: SACUBITRIL\VALSARTAN
     Dosage: 4 DOSAGE FORM, QD, 2 DOSAGE FORM (49/51 MG ), BID
     Route: 065
     Dates: start: 201911
  48. SACUBITRIL\VALSARTAN [Suspect]
     Active Substance: SACUBITRIL\VALSARTAN
     Dosage: 1 DOSAGE FORM, QD (1 DOSAGE FORMS DAILY; 24/26 MG)
     Route: 065
     Dates: start: 202109
  49. SACUBITRIL\VALSARTAN [Suspect]
     Active Substance: SACUBITRIL\VALSARTAN
     Dosage: UNK UNK, QD (DOSAGE FORM (24/26 MG) BID)
     Route: 065
     Dates: start: 20211112
  50. SACUBITRIL\VALSARTAN [Suspect]
     Active Substance: SACUBITRIL\VALSARTAN
     Dosage: 1 DOSAGE FORM, QD, 1 DF, QD
     Dates: start: 20211112
  51. SACUBITRIL\VALSARTAN [Suspect]
     Active Substance: SACUBITRIL\VALSARTAN
     Dosage: 1 DOSAGE FORM, BID (2 DOSAGE FORMS DAILY; 24/26 MG)
     Route: 065
     Dates: start: 202111
  52. SACUBITRIL\VALSARTAN [Suspect]
     Active Substance: SACUBITRIL\VALSARTAN
     Dosage: 1 DOSAGE FORM, QD (1 DOSAGE FORMS DAILY; 24/26 MG)
     Route: 065
  53. SACUBITRIL\VALSARTAN [Suspect]
     Active Substance: SACUBITRIL\VALSARTAN
     Dosage: 2 UNK, QD (49/51 MG)
     Route: 065
  54. APIXABAN [Suspect]
     Active Substance: APIXABAN
     Indication: Cerebrovascular accident prophylaxis
     Dosage: 5 MILLIGRAM, QD (2.5 MG, BID)
     Route: 065
     Dates: start: 201810
  55. APIXABAN [Suspect]
     Active Substance: APIXABAN
     Dosage: 5 MILLIGRAM, QD (2.5 MG, BID)
     Route: 065
     Dates: start: 201910
  56. APIXABAN [Suspect]
     Active Substance: APIXABAN
     Dosage: 5 MILLIGRAM, QD (2.5 MG, BID)
     Route: 065
     Dates: start: 20211112
  57. APIXABAN [Suspect]
     Active Substance: APIXABAN
     Dosage: UNK
  58. APIXABAN [Suspect]
     Active Substance: APIXABAN
     Dosage: UNK
     Route: 065
     Dates: start: 20211112
  59. EPLERENONE [Suspect]
     Active Substance: EPLERENONE
     Indication: Product used for unknown indication
     Dosage: 25 MILLIGRAM, QD (25 MG QD, AT NOON)
     Route: 065
     Dates: start: 201810
  60. EPLERENONE [Suspect]
     Active Substance: EPLERENONE
     Dosage: 50 MILLIGRAM, QD (50 MILLIGRAM DAILY; AT NOON)
     Route: 065
     Dates: start: 201910
  61. EPLERENONE [Suspect]
     Active Substance: EPLERENONE
     Dosage: 50 MILLIGRAM, QD (50 MG, QD)
     Route: 065
     Dates: start: 201910
  62. EPLERENONE [Suspect]
     Active Substance: EPLERENONE
     Dosage: 25 MILLIGRAM, QD (25 MG QD, 1/2)
     Route: 065
     Dates: start: 202109
  63. EPLERENONE [Suspect]
     Active Substance: EPLERENONE
     Dosage: 25 MILLIGRAM, QD (25 MG, QD)
     Route: 065
     Dates: start: 20211112
  64. EPLERENONE [Suspect]
     Active Substance: EPLERENONE
     Dosage: 25 MILLIGRAM, QD
     Route: 065
  65. EPLERENONE [Suspect]
     Active Substance: EPLERENONE
     Dosage: 50 MILLIGRAM, QD (50 MILLIGRAM DAILY)
     Route: 065
  66. FUROSEMIDE [Suspect]
     Active Substance: FUROSEMIDE
     Indication: Product used for unknown indication
     Dosage: 80 MILLIGRAM, QD (40 MG, BID,  IN THE MORNING)
     Route: 065
     Dates: start: 201810
  67. FUROSEMIDE [Suspect]
     Active Substance: FUROSEMIDE
     Dosage: 80 MILLIGRAM, QD (40 MG, BID)
     Route: 065
     Dates: start: 201810
  68. FUROSEMIDE [Suspect]
     Active Substance: FUROSEMIDE
     Dosage: 40 MILLIGRAM, QD (40 MG, QD)
     Route: 065
     Dates: start: 201910
  69. FUROSEMIDE [Suspect]
     Active Substance: FUROSEMIDE
     Dosage: 80 MILLIGRAM, QD (40 MG, BID)
     Route: 065
     Dates: start: 201910
  70. FUROSEMIDE [Suspect]
     Active Substance: FUROSEMIDE
     Dosage: 50 MILLIGRAM, QD (50 MG, QD)
     Route: 065
  71. FUROSEMIDE [Suspect]
     Active Substance: FUROSEMIDE
     Dosage: 80 MILLIGRAM, QD (40 MG, BID)
     Route: 065
     Dates: start: 202109
  72. FUROSEMIDE [Suspect]
     Active Substance: FUROSEMIDE
     Dosage: 80 MILLIGRAM, QD (40 MG, BID)
     Route: 065
     Dates: start: 20211112
  73. FUROSEMIDE [Suspect]
     Active Substance: FUROSEMIDE
     Dosage: 40 MG QAM
     Dates: start: 201810
  74. FUROSEMIDE [Suspect]
     Active Substance: FUROSEMIDE
     Dosage: 160 MILLIGRAM, (40 MG, BID)
     Route: 065
     Dates: start: 201810
  75. FUROSEMIDE [Suspect]
     Active Substance: FUROSEMIDE
     Dosage: 160 MILLIGRAM, (40 MG, BID)
     Route: 065
     Dates: start: 201910
  76. FUROSEMIDE [Suspect]
     Active Substance: FUROSEMIDE
     Dosage: 40 MILLIGRAM, QD (40 MILLIGRAM DAILY)
     Route: 065
  77. NYSTATIN [Suspect]
     Active Substance: NYSTATIN
     Indication: Product used for unknown indication
     Dosage: UNK

REACTIONS (17)
  - Pneumonia [Unknown]
  - Chronic kidney disease [Unknown]
  - Pulmonary congestion [Unknown]
  - Atrial thrombosis [Unknown]
  - Urinary tract infection [Unknown]
  - Myopathy [Unknown]
  - Atrial fibrillation [Unknown]
  - Disease progression [Unknown]
  - Congestive cardiomyopathy [Unknown]
  - Sinus tachycardia [Unknown]
  - Cardiac failure [Unknown]
  - Cardiac failure chronic [Unknown]
  - Ventricular arrhythmia [Unknown]
  - Cardiomyopathy [Unknown]
  - Cardiogenic shock [Unknown]
  - Low cardiac output syndrome [Unknown]
  - Dyskinesia [Unknown]

NARRATIVE: CASE EVENT DATE: 20190901
